FAERS Safety Report 25863518 (Version 1)
Quarter: 2025Q3

REPORT INFORMATION
  Report Type: Spontaneous
  Country: EU (occurrence: EU)
  Receive Date: 20250930
  Receipt Date: 20250930
  Transmission Date: 20251020
  Serious: Yes (Life-Threatening, Hospitalization)
  Sender: ACCORD
  Company Number: EU-MLMSERVICE-20250911-PI643236-00165-1

PATIENT
  Age: 40 Year
  Sex: Male
  Weight: 123 kg

DRUGS (1)
  1. GEMCITABINE [Suspect]
     Active Substance: GEMCITABINE
     Indication: Cholangiocarcinoma

REACTIONS (6)
  - Thrombotic microangiopathy [Recovering/Resolving]
  - Agranulocytosis [Unknown]
  - Hypertensive encephalopathy [Unknown]
  - Cerebral haemorrhage [Unknown]
  - Hypervolaemia [Unknown]
  - Ascites [Unknown]
